FAERS Safety Report 17412821 (Version 1)
Quarter: 2020Q1

REPORT INFORMATION
  Report Type: Spontaneous
  Country: US (occurrence: US)
  Receive Date: 20200212
  Receipt Date: 20200212
  Transmission Date: 20200409
  Serious: No
  Sender: FDA-Public Use
  Company Number: None

PATIENT
  Age: 72 Year
  Sex: Female
  Weight: 87.2 kg

DRUGS (5)
  1. APREPITANT 40MG [Concomitant]
     Dates: start: 20200212, end: 20200212
  2. ENALAPRIL 10MG [Concomitant]
     Active Substance: ENALAPRIL
  3. SPIRONOLACTONE 50MG [Concomitant]
     Active Substance: SPIRONOLACTONE
  4. VANCOMYCIN [Suspect]
     Active Substance: VANCOMYCIN
     Indication: KNEE ARTHROPLASTY
     Dosage: ?          OTHER FREQUENCY:ONCE;?
     Route: 042
  5. CYMBALTA [Concomitant]
     Active Substance: DULOXETINE HYDROCHLORIDE

REACTIONS (1)
  - Pruritus [None]

NARRATIVE: CASE EVENT DATE: 20200212
